FAERS Safety Report 21866857 (Version 2)
Quarter: 2023Q1

REPORT INFORMATION
  Report Type: Spontaneous
  Country: US (occurrence: US)
  Receive Date: 20230116
  Receipt Date: 20230118
  Transmission Date: 20230417
  Serious: Yes (Hospitalization, Other)
  Sender: FDA-Public Use
  Company Number: US-PFIZER INC-202300016284

PATIENT
  Age: 82 Year
  Sex: Male
  Weight: 76.2 kg

DRUGS (1)
  1. VYNDAMAX [Suspect]
     Active Substance: TAFAMIDIS
     Indication: Amyloidosis
     Dosage: 61 MG, 1X/DAY
     Route: 048
     Dates: start: 2022

REACTIONS (4)
  - Hydrothorax [Unknown]
  - Dyspnoea [Unknown]
  - Weight decreased [Unknown]
  - Asthenia [Unknown]
